FAERS Safety Report 18862092 (Version 7)
Quarter: 2022Q3

REPORT INFORMATION
  Report Type: Spontaneous
  Country: JP (occurrence: JP)
  Receive Date: 20210208
  Receipt Date: 20220719
  Transmission Date: 20221026
  Serious: Yes (Hospitalization, Other)
  Sender: FDA-Public Use
  Company Number: NVSJ2021JP001899

PATIENT
  Age: 0 Year
  Sex: Male

DRUGS (66)
  1. ILARIS [Suspect]
     Active Substance: CANAKINUMAB
     Indication: Foetal exposure during pregnancy
     Dosage: 240 MG
     Route: 064
     Dates: start: 20180816
  2. ILARIS [Suspect]
     Active Substance: CANAKINUMAB
     Dosage: 240 MG
     Route: 064
     Dates: start: 20180911
  3. ILARIS [Suspect]
     Active Substance: CANAKINUMAB
     Dosage: 240 MG
     Route: 064
     Dates: start: 20181009
  4. ILARIS [Suspect]
     Active Substance: CANAKINUMAB
     Dosage: 240 MG
     Route: 064
     Dates: start: 20181113
  5. ILARIS [Suspect]
     Active Substance: CANAKINUMAB
     Dosage: 240 MG
     Route: 064
     Dates: start: 20181211
  6. ILARIS [Suspect]
     Active Substance: CANAKINUMAB
     Dosage: 240 MG
     Route: 064
     Dates: start: 20190108
  7. ILARIS [Suspect]
     Active Substance: CANAKINUMAB
     Dosage: 240 MG
     Route: 064
     Dates: start: 20190204
  8. ILARIS [Suspect]
     Active Substance: CANAKINUMAB
     Dosage: 232.5 MG
     Route: 064
     Dates: start: 20190304
  9. ILARIS [Suspect]
     Active Substance: CANAKINUMAB
     Dosage: 240 MG
     Route: 064
     Dates: start: 20190401
  10. ILARIS [Suspect]
     Active Substance: CANAKINUMAB
     Dosage: 240 MG
     Route: 064
     Dates: start: 20190423
  11. ILARIS [Suspect]
     Active Substance: CANAKINUMAB
     Dosage: 240 MG
     Route: 064
     Dates: start: 20190520
  12. ILARIS [Suspect]
     Active Substance: CANAKINUMAB
     Dosage: 240 MG
     Route: 064
     Dates: start: 20190625
  13. ILARIS [Suspect]
     Active Substance: CANAKINUMAB
     Dosage: 255 MG
     Route: 064
     Dates: start: 20190724
  14. ILARIS [Suspect]
     Active Substance: CANAKINUMAB
     Dosage: 240 MG
     Route: 064
     Dates: start: 20190813
  15. ILARIS [Suspect]
     Active Substance: CANAKINUMAB
     Dosage: 270 MG
     Route: 064
     Dates: start: 20190906
  16. ILARIS [Suspect]
     Active Substance: CANAKINUMAB
     Dosage: 240 MG
     Route: 064
     Dates: start: 20191001
  17. ILARIS [Suspect]
     Active Substance: CANAKINUMAB
     Dosage: 270 MG
     Route: 064
     Dates: start: 20191107
  18. ILARIS [Suspect]
     Active Substance: CANAKINUMAB
     Dosage: 270 MG
     Route: 064
     Dates: start: 20191206
  19. ILARIS [Suspect]
     Active Substance: CANAKINUMAB
     Dosage: 270 MG
     Route: 064
     Dates: start: 20200109
  20. ILARIS [Suspect]
     Active Substance: CANAKINUMAB
     Dosage: 270 MG
     Route: 064
     Dates: start: 20200130
  21. ILARIS [Suspect]
     Active Substance: CANAKINUMAB
     Dosage: 270 MG
     Route: 064
     Dates: start: 20200227
  22. ILARIS [Suspect]
     Active Substance: CANAKINUMAB
     Dosage: 300 MG
     Route: 064
     Dates: start: 20200326
  23. ILARIS [Suspect]
     Active Substance: CANAKINUMAB
     Dosage: 240 MG
     Route: 064
     Dates: start: 20200421
  24. ILARIS [Suspect]
     Active Substance: CANAKINUMAB
     Dosage: 300 MG
     Route: 064
     Dates: start: 20200521
  25. ILARIS [Suspect]
     Active Substance: CANAKINUMAB
     Dosage: 240 MG
     Route: 064
     Dates: start: 20200616
  26. ILARIS [Suspect]
     Active Substance: CANAKINUMAB
     Dosage: 300 MG
     Route: 064
     Dates: start: 20200717
  27. ILARIS [Suspect]
     Active Substance: CANAKINUMAB
     Dosage: 300 MG
     Route: 064
     Dates: start: 20200813
  28. PREDNISOLONE [Concomitant]
     Active Substance: PREDNISOLONE
     Indication: Foetal exposure during pregnancy
     Dosage: MATERNAL DOSE: 20 MG
     Route: 064
     Dates: start: 200703, end: 20200129
  29. PREDNISOLONE [Concomitant]
     Active Substance: PREDNISOLONE
     Dosage: 30 MG
     Route: 064
     Dates: start: 20200130, end: 20200812
  30. PREDNISOLONE [Concomitant]
     Active Substance: PREDNISOLONE
     Dosage: MATERNAL DOSE: 18.50 MG
     Route: 064
     Dates: start: 20200813
  31. SULFAMETHOXAZOLE\TRIMETHOPRIM [Concomitant]
     Active Substance: SULFAMETHOXAZOLE\TRIMETHOPRIM
     Indication: Foetal exposure during pregnancy
     Dosage: MATERNAL DOSE: 1 DF
     Route: 064
     Dates: start: 20171124, end: 20200709
  32. SULFAMETHOXAZOLE\TRIMETHOPRIM [Concomitant]
     Active Substance: SULFAMETHOXAZOLE\TRIMETHOPRIM
     Dosage: 1 DF
     Route: 064
     Dates: start: 20201105
  33. FAMOTIDINE [Concomitant]
     Active Substance: FAMOTIDINE
     Indication: Foetal exposure during pregnancy
     Dosage: MATERNAL DOSE: 20 MG
     Route: 064
     Dates: start: 20140529
  34. PROGRAF [Concomitant]
     Active Substance: TACROLIMUS
     Indication: Foetal exposure during pregnancy
     Dosage: MATERNAL DOSE: 4 MG
     Route: 064
     Dates: start: 20160215
  35. LOXOPROFEN SODIUM [Concomitant]
     Active Substance: LOXOPROFEN SODIUM
     Indication: Foetal exposure during pregnancy
     Dosage: MATERNAL DOSE: 100 MG
     Route: 064
     Dates: start: 20180119
  36. AZULFIDINE [Concomitant]
     Active Substance: SULFASALAZINE
     Indication: Foetal exposure during pregnancy
     Dosage: 1000 MG
     Route: 064
     Dates: start: 20181113, end: 20190116
  37. RELENZA [Concomitant]
     Active Substance: ZANAMIVIR
     Indication: Foetal exposure during pregnancy
     Dosage: MATERNAL DOSE: 10 MG
     Route: 064
     Dates: start: 20190225, end: 20190315
  38. DENOSUMAB [Concomitant]
     Active Substance: DENOSUMAB
     Indication: Foetal exposure during pregnancy
     Dosage: MATERNAL DOSE: 60 MG
     Route: 064
     Dates: start: 20180214, end: 20200717
  39. EFINACONAZOLE [Concomitant]
     Active Substance: EFINACONAZOLE
     Indication: Foetal exposure during pregnancy
     Dosage: 0.5 ML
     Route: 064
     Dates: start: 20191105, end: 20191121
  40. METOCLOPRAMIDE [Concomitant]
     Active Substance: METOCLOPRAMIDE
     Indication: Foetal exposure during pregnancy
     Dosage: MATERNAL DOSE: 5 MG
     Route: 064
     Dates: start: 20191108, end: 20191110
  41. METOCLOPRAMIDE [Concomitant]
     Active Substance: METOCLOPRAMIDE
     Dosage: 5 MG
     Route: 064
     Dates: start: 20200326, end: 20200717
  42. SODIUM FERROUS CITRATE [Concomitant]
     Active Substance: SODIUM FERROUS CITRATE
     Indication: Foetal exposure during pregnancy
     Dosage: MATERNAL DOSE: 50 MG
     Route: 064
     Dates: start: 20190108
  43. CARBOCYSTEINE [Concomitant]
     Active Substance: CARBOCYSTEINE
     Indication: Foetal exposure during pregnancy
     Dosage: MATERNAL DOSE: 1500 MG
     Route: 064
     Dates: start: 20190304, end: 20190313
  44. CARBOCYSTEINE [Concomitant]
     Active Substance: CARBOCYSTEINE
     Dosage: MATERNAL DOSE: 1500 MG
     Route: 064
     Dates: start: 20190520, end: 20190526
  45. DEXTROMETHORPHAN HYDROBROMIDE [Concomitant]
     Active Substance: DEXTROMETHORPHAN HYDROBROMIDE
     Indication: Foetal exposure during pregnancy
     Dosage: MATERNAL DOSE: 45 MG
     Route: 064
     Dates: start: 20190304, end: 20190313
  46. DEXTROMETHORPHAN HYDROBROMIDE [Concomitant]
     Active Substance: DEXTROMETHORPHAN HYDROBROMIDE
     Dosage: MATERNAL DOSE: 45 MG
     Route: 048
     Dates: start: 20190520, end: 20190526
  47. KEFLEX [Concomitant]
     Active Substance: CEPHALEXIN
     Indication: Foetal exposure during pregnancy
     Dosage: MATERNAL DOSE: 1000 MG
     Route: 064
     Dates: start: 20190321, end: 20190322
  48. CEFAZOLIN SODIUM [Concomitant]
     Active Substance: CEFAZOLIN SODIUM
     Indication: Foetal exposure during pregnancy
     Dosage: MATERNAL DOSE: 2 G
     Route: 064
     Dates: start: 20190320, end: 20190320
  49. RINDERON V [Concomitant]
     Active Substance: BETAMETHASONE VALERATE
     Indication: Foetal exposure during pregnancy
     Dosage: MATERNAL DOSE: 1 G
     Route: 064
     Dates: start: 20190906
  50. ACETAMINOPHEN [Concomitant]
     Active Substance: ACETAMINOPHEN
     Indication: Foetal exposure during pregnancy
     Dosage: MATERNAL DOSE: 500 MG, PRN
     Route: 064
     Dates: start: 20191029, end: 20191104
  51. BIO-THREE [Concomitant]
     Active Substance: HERBALS
     Indication: Foetal exposure during pregnancy
     Dosage: MATERNAL DOSE: 3 DF
     Route: 064
     Dates: start: 20191105, end: 20191121
  52. DEXAMETHASONE [Concomitant]
     Active Substance: DEXAMETHASONE
     Indication: Foetal exposure during pregnancy
     Dosage: MATERNAL DOSE: 5 MG
     Route: 064
     Dates: start: 20191029, end: 20191031
  53. DEXAMETHASONE [Concomitant]
     Active Substance: DEXAMETHASONE
     Dosage: MATERNAL DOSE: 5 MG
     Route: 064
     Dates: start: 20191104, end: 20191106
  54. DEXAMETHASONE [Concomitant]
     Active Substance: DEXAMETHASONE
     Dosage: MATERNAL DOSE: 5 MG
     Route: 064
     Dates: start: 20200113, end: 20200114
  55. DEXAMETHASONE [Concomitant]
     Active Substance: DEXAMETHASONE
     Dosage: MATERNAL DOSE: 5 MG
     Route: 064
     Dates: start: 20200119, end: 20200120
  56. SOLU-MEDROL [Concomitant]
     Active Substance: METHYLPREDNISOLONE SODIUM SUCCINATE
     Indication: Foetal exposure during pregnancy
     Dosage: MATERNAL DOSE: 1000 MG
     Route: 064
     Dates: start: 20191101, end: 20191103
  57. SOLU-MEDROL [Concomitant]
     Active Substance: METHYLPREDNISOLONE SODIUM SUCCINATE
     Dosage: MATERNAL DOSE: 1000 MG
     Route: 064
     Dates: start: 20200115, end: 20200118
  58. HEPARIN [Concomitant]
     Active Substance: HEPARIN SODIUM
     Indication: Foetal exposure during pregnancy
     Dosage: MATERNAL DOSE: 5000 IU
     Route: 064
     Dates: start: 20191029, end: 20191103
  59. VENILON [Concomitant]
     Active Substance: HUMAN IMMUNOGLOBULIN G
     Indication: Foetal exposure during pregnancy
     Dosage: MATERNAL DOSE: 30 G
     Route: 064
     Dates: start: 20191030, end: 20191030
  60. MIYA-BM [Concomitant]
     Active Substance: CLOSTRIDIUM BUTYRICUM SPORES STRAIN M-55
     Indication: Foetal exposure during pregnancy
     Dosage: MATERNAL DOSE: 3 DF
     Route: 064
     Dates: start: 20200731, end: 20200813
  61. GLYCOSAMINOGLYCANS [Concomitant]
     Active Substance: GLYCOSAMINOGLYCANS
     Indication: Foetal exposure during pregnancy
     Dosage: MATERNAL DOSE: 2 G
     Route: 064
     Dates: start: 20181211
  62. DACTIL [Concomitant]
     Indication: Foetal exposure during pregnancy
     Dosage: MATERNAL DOSE: UNK
     Route: 064
     Dates: start: 20200801, end: 20200813
  63. RIKAVERIN [Concomitant]
     Indication: Foetal exposure during pregnancy
     Dosage: UMATERNAL DOSE: UNK
     Route: 064
     Dates: start: 20200801, end: 20200812
  64. AMOXICILLIN [Concomitant]
     Active Substance: AMOXICILLIN
     Indication: Foetal exposure during pregnancy
     Dosage: MATERNAL DOSE: UNK
     Route: 064
     Dates: start: 20200801, end: 202008
  65. PLATELETS [Concomitant]
     Active Substance: HUMAN PLATELET, ALLOGENIC
     Indication: Foetal exposure during pregnancy
     Dosage: MATERNAL DOSE: 20 IU (FOR 3 DAYS)
     Route: 064
     Dates: start: 20210119, end: 20210129
  66. FRESH FROZEN PLASMA [Concomitant]
     Active Substance: HUMAN PLASMA
     Indication: Foetal exposure during pregnancy
     Dosage: MATERNAL DOSE: 6 IU
     Route: 064
     Dates: start: 20210119, end: 20210119

REACTIONS (5)
  - Premature baby [Unknown]
  - Transient tachypnoea of the newborn [Recovered/Resolved]
  - Low birth weight baby [Recovering/Resolving]
  - Foetal growth restriction [Recovered/Resolved]
  - Foetal exposure during pregnancy [Unknown]

NARRATIVE: CASE EVENT DATE: 20210115
